FAERS Safety Report 12808906 (Version 1)
Quarter: 2016Q4

REPORT INFORMATION
  Report Type: Spontaneous
  Country: RO (occurrence: RO)
  Receive Date: 20161004
  Receipt Date: 20161004
  Transmission Date: 20170207
  Serious: Yes (Hospitalization, Other)
  Sender: FDA-Public Use
  Company Number: RO-IMPAX LABORATORIES, INC-2016-IPXL-01352

PATIENT
  Age: 10 Year
  Sex: Female

DRUGS (1)
  1. ALBENZA [Suspect]
     Active Substance: ALBENDAZOLE
     Indication: INFECTION PARASITIC
     Dosage: UNK
     Route: 065

REACTIONS (3)
  - Hepatitis cholestatic [Unknown]
  - Autoimmune hepatitis [Unknown]
  - Acute hepatic failure [Unknown]
